FAERS Safety Report 4298528-0 (Version None)
Quarter: 2004Q1

REPORT INFORMATION
  Report Type: 
  Country: None (occurrence: None)
  Receive Date: 20040218
  Receipt Date: 20021008
  Transmission Date: 20041129
  Serious: Yes (Other)
  Sender: FDA-Public Use
  Company Number: WAES 0210NZL00211

PATIENT
  Age: 78 Year
  Sex: Male

DRUGS (4)
  1. ASPIRIN [Concomitant]
     Route: 048
  2. ATORVASTATIN CALCIUM [Concomitant]
     Route: 048
  3. DILTIAZEM HYDROCHLORIDE [Concomitant]
     Route: 048
  4. VIOXX [Suspect]
     Indication: ARTHRALGIA
     Route: 048
     Dates: start: 20020220, end: 20020201

REACTIONS (6)
  - BLINDNESS TRANSIENT [None]
  - CATARACT [None]
  - DISORIENTATION [None]
  - RETINAL DEGENERATION [None]
  - ROAD TRAFFIC ACCIDENT [None]
  - VISUAL ACUITY REDUCED [None]
